FAERS Safety Report 23103320 (Version 1)
Quarter: 2023Q4

REPORT INFORMATION
  Report Type: Spontaneous
  Country: US (occurrence: None)
  Receive Date: 20231024
  Receipt Date: 20231024
  Transmission Date: 20240110
  Serious: Yes (unspecified)
  Sender: FDA-Public Use
  Company Number: None

PATIENT
  Age: 72 Year
  Sex: Female
  Weight: 51.75 kg

DRUGS (15)
  1. ARIPIPRAZOLE [Suspect]
     Active Substance: ARIPIPRAZOLE
     Indication: Wrong patient received product
     Dates: start: 20231021, end: 20231022
  2. DOXAZOSIN [Concomitant]
     Active Substance: DOXAZOSIN MESYLATE
  3. LIDOCAINE [Concomitant]
     Active Substance: LIDOCAINE
  4. NEURONTIN [Concomitant]
     Active Substance: GABAPENTIN
  5. ELIQUIS [Concomitant]
     Active Substance: APIXABAN
  6. GABAPENTIN [Concomitant]
     Active Substance: GABAPENTIN
  7. LEVOTHYROXINE SODIUM [Concomitant]
     Active Substance: LEVOTHYROXINE SODIUM
  8. LINZESS [Concomitant]
     Active Substance: LINACLOTIDE
  9. LOSARTAN POTASSIUM [Concomitant]
     Active Substance: LOSARTAN POTASSIUM
  10. NIFEDIPINE [Concomitant]
     Active Substance: NIFEDIPINE
  11. OMEGA 3 [Concomitant]
     Active Substance: CAPSAICIN
  12. RENVELA [Concomitant]
     Active Substance: SEVELAMER CARBONATE
  13. SIMVASTATIN [Concomitant]
     Active Substance: SIMVASTATIN
  14. TRAZODONE [Concomitant]
     Active Substance: TRAZODONE HYDROCHLORIDE
  15. VELTASSA [Concomitant]
     Active Substance: PATIROMER

REACTIONS (8)
  - Wrong product administered [None]
  - Insomnia [None]
  - Fatigue [None]
  - Asthenia [None]
  - Blood pressure diastolic decreased [None]
  - Intentional dose omission [None]
  - Dialysis [None]
  - Disorientation [None]

NARRATIVE: CASE EVENT DATE: 20231023
